FAERS Safety Report 14994343 (Version 1)
Quarter: 2018Q2

REPORT INFORMATION
  Report Type: Spontaneous
  Country: US (occurrence: US)
  Receive Date: 20180611
  Receipt Date: 20180611
  Transmission Date: 20180711
  Serious: Yes (Other)
  Sender: FDA-Public Use
  Company Number: US-PROCTER_AND_GAMBLE-GS18065655

PATIENT
  Age: 18 Year
  Sex: Female

DRUGS (1)
  1. CREST [Suspect]
     Active Substance: SODIUM FLUORIDE
     Dosage: TINY AMOUNT, 2 /DAY
     Route: 002
     Dates: end: 20180528

REACTIONS (2)
  - Tooth loss [Unknown]
  - Tooth discolouration [Recovered/Resolved]
